FAERS Safety Report 21547502 (Version 1)
Quarter: 2022Q4

REPORT INFORMATION
  Report Type: Spontaneous
  Country: US (occurrence: None)
  Receive Date: 20221102
  Receipt Date: 20221102
  Transmission Date: 20230112
  Serious: Yes (Death, Hospitalization)
  Sender: FDA-Public Use
  Company Number: None

PATIENT
  Sex: Female
  Weight: 70.7 kg

DRUGS (1)
  1. ASPIRIN [Suspect]
     Active Substance: ASPIRIN
     Dates: end: 20181005

REACTIONS (8)
  - Hypoglycaemia [None]
  - Lethargy [None]
  - Confusional state [None]
  - Urine output decreased [None]
  - Blood bilirubin increased [None]
  - Blood lactate dehydrogenase increased [None]
  - Disease progression [None]
  - Hospice care [None]

NARRATIVE: CASE EVENT DATE: 20221007
